FAERS Safety Report 17044605 (Version 2)
Quarter: 2019Q4

REPORT INFORMATION
  Report Type: Report from Study
  Country: HU (occurrence: HU)
  Receive Date: 20191118
  Receipt Date: 20191120
  Transmission Date: 20200122
  Serious: Yes (Life-Threatening, Hospitalization, Other)
  Sender: FDA-Public Use
  Company Number: HU-PFIZER INC-2019493374

PATIENT
  Age: 26 Year
  Sex: Female
  Weight: 50 kg

DRUGS (6)
  1. XANAX [Suspect]
     Active Substance: ALPRAZOLAM
     Indication: AGORAPHOBIA
  2. CONTROLOC [Concomitant]
     Active Substance: PANTOPRAZOLE SODIUM
     Indication: GASTRIC DISORDER
     Dosage: UNK
  3. NEBIVOLOL. [Concomitant]
     Active Substance: NEBIVOLOL
     Indication: HYPERTENSION
     Dosage: UNK
  4. VISANNE [Suspect]
     Active Substance: DIENOGEST
     Indication: ENDOMETRIOSIS
     Dosage: 2 MG, 1X/DAY
     Route: 048
     Dates: start: 201312, end: 201405
  5. REFLUXON [Concomitant]
     Indication: GASTRIC DISORDER
     Dosage: UNK
  6. XANAX [Suspect]
     Active Substance: ALPRAZOLAM
     Indication: PANIC DISORDER
     Dosage: UNK

REACTIONS (8)
  - Apathy [Unknown]
  - Agoraphobia [Unknown]
  - Drug dependence [Recovered/Resolved]
  - Panic disorder [Unknown]
  - Libido decreased [Unknown]
  - Depression [Unknown]
  - Decreased appetite [Unknown]
  - Suicide attempt [Unknown]

NARRATIVE: CASE EVENT DATE: 2014
